FAERS Safety Report 16364731 (Version 2)
Quarter: 2020Q3

REPORT INFORMATION
  Report Type: Spontaneous
  Country: AU (occurrence: AU)
  Receive Date: 20190529
  Receipt Date: 20200812
  Transmission Date: 20201102
  Serious: Yes (Hospitalization, Other)
  Sender: FDA-Public Use
  Company Number: AU-009507513-1905AUS011593

PATIENT
  Sex: Female

DRUGS (1)
  1. JANUMET [Suspect]
     Active Substance: METFORMIN HYDROCHLORIDE\SITAGLIPTIN PHOSPHATE
     Indication: DIABETES MELLITUS
     Dosage: SITAGLIPTIN 100 MG AND METFORMIN MG WAS NOT REPORTED
     Route: 048

REACTIONS (3)
  - Weight decreased [Unknown]
  - Cough [Unknown]
  - Syncope [Unknown]
